FAERS Safety Report 22208105 (Version 1)
Quarter: 2023Q2

REPORT INFORMATION
  Report Type: Spontaneous
  Country: CA (occurrence: CA)
  Receive Date: 20230413
  Receipt Date: 20230413
  Transmission Date: 20230721
  Serious: Yes (Other)
  Sender: FDA-Public Use
  Company Number: CA-SAMSUNG BIOEPIS-SB-2023-09311

PATIENT
  Age: 56 Year
  Sex: Male

DRUGS (2)
  1. INFLIXIMAB [Suspect]
     Active Substance: INFLIXIMAB
     Indication: Colitis ulcerative
     Dosage: UNKNOWN
     Route: 065
  2. INFLIXIMAB [Suspect]
     Active Substance: INFLIXIMAB
     Route: 042

REACTIONS (9)
  - Cough [Unknown]
  - Hand repair operation [Unknown]
  - Headache [Unknown]
  - Illness [Unknown]
  - Nausea [Unknown]
  - Pain [Unknown]
  - Productive cough [Unknown]
  - Inappropriate schedule of product administration [Unknown]
  - Off label use [Unknown]
